FAERS Safety Report 8791253 (Version 1)
Quarter: 2012Q4

REPORT INFORMATION
  Report Type: Spontaneous
  Country: SG (occurrence: None)
  Receive Date: 20120911
  Receipt Date: 20120911
  Transmission Date: 20130627
  Serious: No
  Sender: FDA-Public Use
  Company Number: 2012P1056220

PATIENT
  Sex: Female

DRUGS (1)
  1. CEFUROXIME [Suspect]

REACTIONS (2)
  - Periorbital oedema [None]
  - Rash pruritic [None]
